FAERS Safety Report 7567999-6 (Version None)
Quarter: 2011Q2

REPORT INFORMATION
  Report Type: 
  Country: None (occurrence: None)
  Receive Date: 20110623
  Receipt Date: 20110616
  Transmission Date: 20111010
  Serious: Yes (Hospitalization)
  Sender: FDA-Public Use
  Company Number: GB-SANOFI-AVENTIS-2011SA038354

PATIENT
  Age: 67 Year
  Sex: Female

DRUGS (7)
  1. CLOZAPINE [Suspect]
     Route: 048
     Dates: start: 19990531
  2. SENNA [Suspect]
  3. AMLODIPINE [Suspect]
  4. CLOZAPINE [Suspect]
     Indication: SCHIZOPHRENIA
     Dates: start: 20030420
  5. DOCUSATE [Suspect]
  6. FUROSEMIDE [Suspect]
  7. DIGOXIN [Suspect]

REACTIONS (2)
  - OVERDOSE [None]
  - DRUG LEVEL INCREASED [None]
